FAERS Safety Report 6415236-8 (Version None)
Quarter: 2009Q4

REPORT INFORMATION
  Report Type: 
  Country: None (occurrence: None)
  Receive Date: 20091027
  Receipt Date: 20091015
  Transmission Date: 20100525
  Serious: Yes (Other)
  Sender: FDA-Public Use
  Company Number: IT-RANBAXY-2009RR-28691

PATIENT
  Sex: Female

DRUGS (2)
  1. RANITIDINE [Suspect]
  2. AMOXICILLIN TRIHYDRATE/CLAVULANIC ACID [Suspect]

REACTIONS (5)
  - ERYTHEMA [None]
  - EYE PRURITUS [None]
  - FACE OEDEMA [None]
  - OEDEMA PERIPHERAL [None]
  - PRURITUS [None]
